FAERS Safety Report 9385954 (Version 2)
Quarter: 2013Q3

REPORT INFORMATION
  Report Type: Report from Study
  Country: DE (occurrence: DE)
  Receive Date: 20130705
  Receipt Date: 20130718
  Transmission Date: 20140515
  Serious: Yes (Death, Other)
  Sender: FDA-Public Use
  Company Number: DE-ABBOTT-13P-062-1115368-00

PATIENT
  Age: 79 Year
  Sex: Male

DRUGS (2)
  1. SIXANTONE [Suspect]
     Indication: PROSTATE CANCER
     Route: 058
     Dates: start: 20120712, end: 201301
  2. ANTIANDROGENS [Concomitant]
     Indication: ANTIANDROGEN THERAPY

REACTIONS (3)
  - Death [Fatal]
  - Renal failure [Unknown]
  - Renal cyst [Unknown]
